FAERS Safety Report 4450249-7 (Version None)
Quarter: 2004Q3

REPORT INFORMATION
  Report Type: 
  Country: None (occurrence: None)
  Receive Date: 20040914
  Receipt Date: 20040906
  Transmission Date: 20050211
  Serious: Yes (Other)
  Sender: FDA-Public Use
  Company Number: 2004232214DE

PATIENT
  Age: 37 Year
  Sex: Female
  Weight: 46 kg

DRUGS (3)
  1. SYNAREL [Suspect]
     Indication: IN VITRO FERTILISATION
     Dosage: 2 BLOWS, NASAL
     Route: 045
     Dates: start: 20040726, end: 20040817
  2. MENOTROPINS [Concomitant]
  3. GANIRELIX [Concomitant]

REACTIONS (3)
  - ANGINA PECTORIS [None]
  - DYSPNOEA [None]
  - PARAESTHESIA [None]
